FAERS Safety Report 11166936 (Version 4)
Quarter: 2015Q3

REPORT INFORMATION
  Report Type: Report from Study
  Country: AT (occurrence: AT)
  Receive Date: 20150605
  Receipt Date: 20150720
  Transmission Date: 20151125
  Serious: Yes (Hospitalization)
  Sender: FDA-Public Use
  Company Number: AT-ROCHE-1587873

PATIENT
  Age: 9 Year
  Sex: Male
  Weight: 30.6 kg

DRUGS (11)
  1. ETOPOSIDE. [Suspect]
     Active Substance: ETOPOSIDE
     Indication: MEDULLOBLASTOMA
     Dosage: 33.16.84MG DAILY UNTIL 18/JUN/2015?DATE OF LAST DOSE PRIOR TO SAE: 01/JUN/2015, DATE OF LAST DOSE PR
     Route: 048
     Dates: start: 20141009
  2. THYREX [Concomitant]
     Active Substance: LEVOTHYROXINE SODIUM
     Indication: HYPOTHYROIDISM
     Route: 048
     Dates: start: 20150115
  3. OLEOVIT D3 [Concomitant]
     Indication: VITAMIN D DEFICIENCY
     Route: 048
     Dates: start: 20150128
  4. LIPOSOMAL CYTARABINE [Suspect]
     Active Substance: CYTARABINE
     Indication: MEDULLOBLASTOMA
     Dosage: DATE OF LAST DOSE PRIOR TO SAE: 01/JUN/2015, DATE OF LAST DOSE PRIOR TO SAE (EPISODE): 22/JUN/2015
     Route: 037
     Dates: start: 20141009
  5. BEVACIZUMAB [Suspect]
     Active Substance: BEVACIZUMAB
     Indication: MEDULLOBLASTOMA
     Dosage: DATE OF LAST DOSE PRIOR TO SAE: 01/JUN/2015, DATE OF LAST DOSE PRIOR TO SAE (EPISODE): 22/JUN/2015
     Route: 065
     Dates: start: 20141009
  6. ETOPOSIDE. [Suspect]
     Active Substance: ETOPOSIDE
     Route: 037
  7. CYCLOPHOSPHAMIDE. [Suspect]
     Active Substance: CYCLOPHOSPHAMIDE
     Indication: MEDULLOBLASTOMA
     Route: 065
     Dates: start: 20141009, end: 20150527
  8. LIDAPRIM FORTE [Concomitant]
     Indication: PROPHYLAXIS
     Dosage: DI-DO
     Route: 048
     Dates: start: 20140624
  9. FENOFIBRATE. [Suspect]
     Active Substance: FENOFIBRATE
     Indication: MEDULLOBLASTOMA
     Dosage: DATE OF LAST DOSE PRIOR TO SAE: 01/JUN/2015 ,DATE OF LAST DOSE PRIOR TO SAE (EPISODE): 22/JUN/2015
     Route: 065
     Dates: start: 20141009
  10. THALIDOMIDE [Suspect]
     Active Substance: THALIDOMIDE
     Indication: MEDULLOBLASTOMA
     Dosage: DATE OF LAST DOSE PRIOR TO SAE: 01/JUN/2015, DATE OF LAST DOSE PRIOR TO SAE (EPISODE): 22/JUN/2015
     Route: 065
     Dates: start: 20141009
  11. CELECOXIB. [Suspect]
     Active Substance: CELECOXIB
     Indication: MEDULLOBLASTOMA
     Dosage: DATE OF LAST DOSE PRIOR TO SAE: 01/JUN/2015, DATE OF LAST DOSE PRIOR TO SAE (EPISODE): 22/JUN/2015?2
     Route: 065
     Dates: start: 20141009

REACTIONS (1)
  - Diplopia [Recovered/Resolved]

NARRATIVE: CASE EVENT DATE: 20150601
